FAERS Safety Report 22337177 (Version 2)
Quarter: 2024Q2

REPORT INFORMATION
  Report Type: Spontaneous
  Country: US (occurrence: None)
  Receive Date: 20230518
  Receipt Date: 20240524
  Transmission Date: 20240716
  Serious: No
  Sender: FDA-Public Use
  Company Number: US-ROCHE-3325235

PATIENT
  Sex: Female

DRUGS (4)
  1. ACTEMRA [Suspect]
     Active Substance: TOCILIZUMAB
     Indication: Vasculitis necrotising
     Dosage: STRENGTH: 162 MG/0.9 ML, LAST DOSE TAKEN 02/MAR/2023
     Route: 058
     Dates: start: 20230404
  2. ACTEMRA [Suspect]
     Active Substance: TOCILIZUMAB
  3. JANUMET XR [Concomitant]
     Active Substance: METFORMIN HYDROCHLORIDE\SITAGLIPTIN PHOSPHATE
     Dosage: 50 TO 500 MG
  4. LEVEMIR [Concomitant]
     Active Substance: INSULIN DETEMIR
     Dosage: 100 UNIT

REACTIONS (2)
  - Off label use [Unknown]
  - No adverse event [Unknown]
